FAERS Safety Report 4993095-8 (Version None)
Quarter: 2006Q1

REPORT INFORMATION
  Report Type: 
  Country: None (occurrence: None)
  Receive Date: 20060313
  Receipt Date: 20060109
  Transmission Date: 20060701
  Serious: No
  Sender: FDA-Public Use
  Company Number: 2005-BP-21330BP

PATIENT
  Age: 68 Year
  Sex: Male

DRUGS (15)
  1. SPIRIVA [Suspect]
     Indication: CHRONIC OBSTRUCTIVE PULMONARY DISEASE
     Dosage: 18 MCG (18 MCG,1 QD),IH
     Dates: start: 20051208
  2. VIAGARA [Concomitant]
  3. ZOCOR [Concomitant]
  4. LASIX [Concomitant]
  5. K+ (POTASSIUM) [Concomitant]
  6. CARDIZEM [Concomitant]
  7. DIAZEPAM [Concomitant]
  8. ROBITUSSIN DM [Concomitant]
  9. OXYGEN (OXYGEN) [Concomitant]
  10. ALBUTEROL SULFATE AUTOHALER [Concomitant]
  11. OMEPRAZOLE [Concomitant]
  12. VALIUM [Concomitant]
  13. ASPIRIN [Concomitant]
  14. TUMS [Concomitant]
  15. REYOMOL [Concomitant]

REACTIONS (3)
  - DIARRHOEA [None]
  - DYSPNOEA [None]
  - ERECTILE DYSFUNCTION [None]
